FAERS Safety Report 4617455-X (Version None)
Quarter: 2005Q1

REPORT INFORMATION
  Report Type: 
  Country: None (occurrence: None)
  Receive Date: 20050322
  Receipt Date: 20050309
  Transmission Date: 20050727
  Serious: Yes (Death)
  Sender: FDA-Public Use
  Company Number: 2005042922

PATIENT
  Age: 4 Month
  Weight: 8.1647 kg

DRUGS (2)
  1. BENADRYL D SOLUTION [Suspect]
     Indication: OVERDOSE
     Dosage: ORAL
     Route: 048
  2. PHENYLPROPANOLAMINE HCL [Suspect]
     Indication: OVERDOSE
     Dosage: ORAL
     Route: 048

REACTIONS (2)
  - COMA [None]
  - OVERDOSE [None]
